FAERS Safety Report 22178460 (Version 1)
Quarter: 2023Q2

REPORT INFORMATION
  Report Type: Spontaneous
  Country: JP (occurrence: JP)
  Receive Date: 20230405
  Receipt Date: 20230405
  Transmission Date: 20230722
  Serious: Yes (Other)
  Sender: FDA-Public Use
  Company Number: JP-009507513-2304JPN001497

PATIENT
  Age: 85 Year
  Sex: Female

DRUGS (4)
  1. SUVOREXANT [Suspect]
     Active Substance: SUVOREXANT
     Indication: Insomnia
  2. ZOPICLONE [Concomitant]
     Active Substance: ZOPICLONE
     Indication: Insomnia
  3. BROTIZOLAM [Concomitant]
     Active Substance: BROTIZOLAM
     Indication: Insomnia
  4. ETIZOLAM [Concomitant]
     Active Substance: ETIZOLAM
     Indication: Insomnia

REACTIONS (1)
  - Drug withdrawal convulsions [Recovered/Resolved]
